FAERS Safety Report 9508779 (Version 1)
Quarter: 2013Q3

REPORT INFORMATION
  Report Type: Spontaneous
  Country: US (occurrence: US)
  Receive Date: 20130909
  Receipt Date: 20130909
  Transmission Date: 20140515
  Serious: No
  Sender: FDA-Public Use
  Company Number: US-BRISTOL-MYERS SQUIBB COMPANY-19102946

PATIENT
  Sex: Male

DRUGS (6)
  1. ABILIFY [Suspect]
     Dates: start: 2011
  2. OLANZAPINE [Concomitant]
  3. RITALIN [Concomitant]
  4. FLUOXETINE [Concomitant]
  5. CLONAZEPAM [Concomitant]
  6. ZOLPIDEM [Concomitant]

REACTIONS (1)
  - Tardive dyskinesia [Unknown]
